FAERS Safety Report 21452993 (Version 1)
Quarter: 2022Q4

REPORT INFORMATION
  Report Type: Other
  Country: US (occurrence: None)
  Receive Date: 20221013
  Receipt Date: 20221013
  Transmission Date: 20230112
  Serious: Yes (Hospitalization)
  Sender: FDA-Public Use
  Company Number: US-ROCHE-2991968

PATIENT
  Age: 36 Year
  Sex: Female
  Weight: 99.880 kg

DRUGS (1)
  1. OCREVUS [Suspect]
     Active Substance: OCRELIZUMAB
     Indication: Relapsing-remitting multiple sclerosis
     Dosage: DOES NOT NEED LOADING DOSE, INFUSE 600 MG Q6MONTHS
     Route: 042
     Dates: start: 201806

REACTIONS (3)
  - Off label use [Unknown]
  - Pneumonia [Recovered/Resolved]
  - Bronchitis [Recovered/Resolved]

NARRATIVE: CASE EVENT DATE: 20220921
